FAERS Safety Report 9698136 (Version 1)
Quarter: 2013Q4

REPORT INFORMATION
  Report Type: Spontaneous
  Country: US (occurrence: US)
  Receive Date: 20131120
  Receipt Date: 20131120
  Transmission Date: 20140711
  Serious: Yes (Life-Threatening, Hospitalization)
  Sender: FDA-Public Use
  Company Number: US-BAYER-2013-139535

PATIENT
  Sex: Female

DRUGS (1)
  1. MIRENA [Suspect]
     Dosage: 20 MCG/24HR, CONT
     Route: 015
     Dates: start: 201208, end: 201309

REACTIONS (10)
  - Ectopic pregnancy with contraceptive device [None]
  - Drug ineffective [None]
  - Abdominal pain lower [None]
  - Injury [None]
  - Emotional distress [None]
  - Pain [None]
  - General physical health deterioration [None]
  - Anhedonia [None]
  - Anxiety [None]
  - Device issue [None]
